FAERS Safety Report 24751454 (Version 1)
Quarter: 2024Q4

REPORT INFORMATION
  Report Type: Spontaneous
  Country: CN (occurrence: CN)
  Receive Date: 20241219
  Receipt Date: 20241219
  Transmission Date: 20250115
  Serious: Yes (Hospitalization)
  Sender: ABBVIE
  Company Number: CN-ABBVIE-6047636

PATIENT
  Age: 58 Year
  Sex: Female
  Weight: 56 kg

DRUGS (7)
  1. VENCLEXTA [Suspect]
     Active Substance: VENETOCLAX
     Indication: Symptomatic treatment
     Route: 048
     Dates: start: 20241030, end: 20241030
  2. VENCLEXTA [Suspect]
     Active Substance: VENETOCLAX
     Indication: Symptomatic treatment
     Route: 048
     Dates: start: 20241031, end: 20241031
  3. VENCLEXTA [Suspect]
     Active Substance: VENETOCLAX
     Indication: Symptomatic treatment
     Route: 048
     Dates: start: 20241101, end: 20241107
  4. OMACETAXINE MEPESUCCINATE [Suspect]
     Active Substance: OMACETAXINE MEPESUCCINATE
     Indication: Symptomatic treatment
     Route: 041
     Dates: start: 20241101, end: 20241107
  5. OMACETAXINE MEPESUCCINATE [Suspect]
     Active Substance: OMACETAXINE MEPESUCCINATE
     Indication: Symptomatic treatment
     Route: 041
     Dates: start: 20241031, end: 20241031
  6. AZACITIDINE [Suspect]
     Active Substance: AZACITIDINE
     Indication: Symptomatic treatment
     Route: 058
     Dates: start: 20241101, end: 20241107
  7. AZACITIDINE [Suspect]
     Active Substance: AZACITIDINE
     Indication: Symptomatic treatment
     Route: 058
     Dates: start: 20241031, end: 20241031

REACTIONS (2)
  - Agranulocytosis [Not Recovered/Not Resolved]
  - Leukopenia [Not Recovered/Not Resolved]

NARRATIVE: CASE EVENT DATE: 20241102
